FAERS Safety Report 7693719-0 (Version None)
Quarter: 2011Q3

REPORT INFORMATION
  Report Type: 
  Country: None (occurrence: None)
  Receive Date: 20110819
  Receipt Date: 20110810
  Transmission Date: 20111222
  Serious: Yes (Other)
  Sender: FDA-Public Use
  Company Number: BE-ROCHE-796557

PATIENT
  Sex: Female
  Weight: 59.5 kg

DRUGS (5)
  1. TAXOL [Suspect]
     Route: 042
     Dates: start: 20110720
  2. HERCEPTIN [Suspect]
     Route: 042
     Dates: start: 20110720, end: 20110810
  3. HERCEPTIN [Suspect]
     Route: 042
  4. HERCEPTIN [Suspect]
     Indication: BREAST CANCER
     Dosage: FORM: PERFUSION
     Route: 042
     Dates: start: 20110518
  5. TAXOL [Suspect]
     Indication: BREAST CANCER
     Dosage: FORM: OTHER: PERFUSION
     Route: 042
     Dates: start: 20110518

REACTIONS (2)
  - HEPATIC ENZYME INCREASED [None]
  - BLOOD BILIRUBIN INCREASED [None]
